FAERS Safety Report 24436838 (Version 2)
Quarter: 2024Q4

REPORT INFORMATION
  Report Type: Report from Study
  Country: US (occurrence: US)
  Receive Date: 20241015
  Receipt Date: 20241024
  Transmission Date: 20250114
  Serious: Yes (Hospitalization, Other)
  Sender: UNKNOWN
  Company Number: US-STALCOR-2024-AER-02219

PATIENT
  Age: 17 Year
  Sex: Male

DRUGS (6)
  1. PALFORZIA [Suspect]
     Active Substance: PEANUT
     Indication: Food allergy
     Route: 048
     Dates: start: 20240726
  2. PALFORZIA [Suspect]
     Active Substance: PEANUT
     Dosage: REACTIVE DOSE AT TIME OF EVENT ONSET?2*100 MG (LEVEL 9)
     Route: 048
     Dates: start: 20240930
  3. ALBUTEROL SULFATE [Concomitant]
     Active Substance: ALBUTEROL SULFATE
     Indication: Product used for unknown indication
  4. AUVI-Q [Concomitant]
     Active Substance: EPINEPHRINE
     Indication: Product used for unknown indication
  5. FISH OIL [Concomitant]
     Active Substance: FISH OIL
     Indication: Product used for unknown indication
  6. MULTIVITAMIN [ASCORBIC ACID;COLECALCIFEROL;DEXPANTHENOL;NICOTINAMIDE;P [Concomitant]
     Indication: Product used for unknown indication

REACTIONS (5)
  - Anaphylactic reaction [Not Recovered/Not Resolved]
  - Swelling [Not Recovered/Not Resolved]
  - Hypoxia [Not Recovered/Not Resolved]
  - Asthenia [Not Recovered/Not Resolved]
  - Pyrexia [Not Recovered/Not Resolved]

NARRATIVE: CASE EVENT DATE: 20240930
